FAERS Safety Report 10373710 (Version 1)
Quarter: 2014Q1

REPORT INFORMATION
  Report Type: Spontaneous
  Country: US (occurrence: None)
  Receive Date: 20140306
  Receipt Date: 20140306
  Transmission Date: 20141002
  Serious: Yes (Hospitalization)
  Sender: FDA-Public Use
  Company Number: 163-21880-13023401

PATIENT
  Age: 68 Year
  Sex: Female
  Weight: 59.9 kg

DRUGS (17)
  1. REVLIMID (LENALIDOMIDE) (CAPSULES) [Suspect]
     Indication: PLASMA CELL MYELOMA
     Dosage: NOT PROVIDED, PO?
     Route: 048
     Dates: start: 20120123
  2. ELOTUZUMAB (ELOTUZUMAB) (UNKNOWN) [Suspect]
     Indication: PLASMA CELL MYELOMA
     Dosage: NOT PROVIDED, IV?
     Route: 042
     Dates: start: 20120123
  3. DEXAMETHASONE (DEXAMETHASONE) (UNKNOWN) [Suspect]
     Indication: PLASMA CELL MYELOMA
     Dosage: NOT PROVIDED, PO
     Route: 048
     Dates: start: 20120123
  4. AUGMENTIN [Concomitant]
  5. RANITIDINE [Concomitant]
  6. ACYCLOVIR (ACICLOVIR) (ACICLOVIR) [Concomitant]
  7. AZITHROMYCIN [Concomitant]
  8. ZOLEDRONIC ACID [Concomitant]
  9. VITAMIN D (ERGOCALCIFEROL) [Concomitant]
  10. VALTREX (VALACICLOVIR HYDROCHLORIDE) [Concomitant]
  11. LEVOTHYROXINE [Concomitant]
  12. MILK OF MAGNESIUM (MAGNESIUM HYDROXIDE) [Concomitant]
  13. OMEPRAZOLE [Concomitant]
  14. LOVENOX (HEPARIN-FRACTION, SODIUM SALT) [Concomitant]
  15. LISINOPRIL [Concomitant]
  16. FOLIC ACID [Concomitant]
  17. LORAZEPAM [Concomitant]

REACTIONS (1)
  - Syncope [None]
